FAERS Safety Report 25808992 (Version 1)
Quarter: 2025Q3

REPORT INFORMATION
  Report Type: Spontaneous
  Country: EU (occurrence: EU)
  Receive Date: 20250916
  Receipt Date: 20250916
  Transmission Date: 20251020
  Serious: Yes (Other)
  Sender: MYLAN
  Company Number: None

PATIENT
  Age: 30 Year
  Sex: Male

DRUGS (8)
  1. PREGABALIN [Suspect]
     Active Substance: PREGABALIN
     Indication: Product used for unknown indication
     Dosage: 300 MILLIGRAM, QD (PER DAY)
     Dates: start: 2009
  2. PREGABALIN [Suspect]
     Active Substance: PREGABALIN
     Dosage: 300 MILLIGRAM, QD (PER DAY)
     Route: 048
     Dates: start: 2009
  3. PREGABALIN [Suspect]
     Active Substance: PREGABALIN
     Dosage: 300 MILLIGRAM, QD (PER DAY)
     Route: 048
     Dates: start: 2009
  4. PREGABALIN [Suspect]
     Active Substance: PREGABALIN
     Dosage: 300 MILLIGRAM, QD (PER DAY)
     Dates: start: 2009
  5. COCAINE [Concomitant]
     Active Substance: COCAINE
  6. COCAINE [Concomitant]
     Active Substance: COCAINE
     Route: 045
  7. COCAINE [Concomitant]
     Active Substance: COCAINE
     Route: 045
  8. COCAINE [Concomitant]
     Active Substance: COCAINE

REACTIONS (3)
  - Drug use disorder [Unknown]
  - Substance use disorder [Unknown]
  - Disturbance in attention [Recovered/Resolved]

NARRATIVE: CASE EVENT DATE: 20170101
